FAERS Safety Report 15233976 (Version 1)
Quarter: 2018Q3

REPORT INFORMATION
  Report Type: Spontaneous
  Country: US (occurrence: US)
  Receive Date: 20180709
  Receipt Date: 20180709
  Transmission Date: 20181010
  Serious: No
  Sender: FDA-Public Use
  Company Number: None

PATIENT
  Age: 6 Year
  Sex: Female

DRUGS (1)
  1. METHOTREXATE INJ  25MG/ML 2ML MDV [Suspect]
     Active Substance: METHOTREXATE SODIUM
     Dates: start: 20180522, end: 20180709

REACTIONS (2)
  - Syringe issue [None]
  - Incorrect dose administered by device [None]

NARRATIVE: CASE EVENT DATE: 20180709
